FAERS Safety Report 7012947-0 (Version None)
Quarter: 2010Q3

REPORT INFORMATION
  Report Type: 
  Country: None (occurrence: None)
  Receive Date: 20100922
  Receipt Date: 20100913
  Transmission Date: 20110219
  Serious: Yes (Death, Hospitalization)
  Sender: FDA-Public Use
  Company Number: 2009-00930

PATIENT
  Age: 64 Year
  Sex: Male

DRUGS (16)
  1. VELCADE [Suspect]
     Indication: MULTIPLE MYELOMA
     Dosage: 2.2 MG, INTRAVENOUS
     Route: 042
     Dates: start: 20090217, end: 20090227
  2. CNT0328 (CNT0328) SOLUTION [Suspect]
     Indication: MULTIPLE MYELOMA
     Dosage: 250 MG
     Dates: start: 20090217, end: 20090305
  3. PLACEBO () [Suspect]
     Indication: MULTIPLE MYELOMA
     Dosage: 250 MG, INTRAVENOUS
     Route: 042
     Dates: start: 20090217, end: 20090305
  4. PERINDOPRIL ERBUMINE [Concomitant]
  5. METOPROLOL SUCCINATE [Concomitant]
  6. BUPRENORPHINE (BUPRENORPHINE) [Concomitant]
  7. PAMIDRONATE DISODIUM [Concomitant]
  8. AMOXICILLIN W/CLAVULANATE POTASSIUM (AMOXICILLIN, CLAVULANATE POTASSIU [Concomitant]
  9. ALLOPURINOL [Concomitant]
  10. OXYGEN (OXYGEN) [Concomitant]
  11. PREDNISOLONE [Concomitant]
  12. THEOPHYLLAMIN (THEOPHYLLINE, ETHYLENEDIAMINE) [Concomitant]
  13. TIOTROPIUM (TIOTROPIUM) [Concomitant]
  14. ACETAMINOPHEN [Concomitant]
  15. OMEPRAZOLE [Concomitant]
  16. TRAMADOL HCL [Concomitant]

REACTIONS (6)
  - DILATATION VENTRICULAR [None]
  - HYPOXIA [None]
  - PULMONARY HYPERTENSION [None]
  - PULMONARY OEDEMA [None]
  - RESPIRATORY DISTRESS [None]
  - TACHYCARDIA [None]
